FAERS Safety Report 23226226 (Version 1)
Quarter: 2023Q4

REPORT INFORMATION
  Report Type: Spontaneous
  Country: US (occurrence: US)
  Receive Date: 20231124
  Receipt Date: 20231124
  Transmission Date: 20240110
  Serious: No
  Sender: FDA-Public Use
  Company Number: US-SANOFI-01845128

PATIENT
  Age: 67 Year
  Sex: Male

DRUGS (1)
  1. TOUJEO MAX [Suspect]
     Active Substance: INSULIN GLARGINE
     Indication: Diabetes mellitus
     Dosage: 8 IU, BID
     Route: 065

REACTIONS (3)
  - Product dispensing error [Unknown]
  - Expired product administered [Unknown]
  - Inappropriate schedule of product administration [Unknown]
